FAERS Safety Report 5783943-6 (Version None)
Quarter: 2008Q2

REPORT INFORMATION
  Report Type: 
  Country: None (occurrence: None)
  Receive Date: 20080605
  Receipt Date: 20080327
  Transmission Date: 20081010
  Serious: No
  Sender: FDA-Public Use
  Company Number: A0717746A

PATIENT
  Age: 50 Year
  Sex: Male

DRUGS (2)
  1. ALLI [Suspect]
     Dates: start: 20080314
  2. TIMOLOL MALEATE [Concomitant]

REACTIONS (2)
  - ABDOMINAL PAIN UPPER [None]
  - RECTAL DISCHARGE [None]
